FAERS Safety Report 16707512 (Version 2)
Quarter: 2019Q4

REPORT INFORMATION
  Report Type: Spontaneous
  Country: US (occurrence: US)
  Receive Date: 20190815
  Receipt Date: 20191224
  Transmission Date: 20200122
  Serious: Yes (Hospitalization)
  Sender: FDA-Public Use
  Company Number: US-ACTELION-A-NJ2019-192631

PATIENT
  Sex: Female
  Weight: 64.4 kg

DRUGS (5)
  1. TYVASO [Concomitant]
     Active Substance: TREPROSTINIL
  2. DILTIAZEM. [Concomitant]
     Active Substance: DILTIAZEM
  3. ESBRIET [Concomitant]
     Active Substance: PIRFENIDONE
  4. AMLODIPINE [Concomitant]
     Active Substance: AMLODIPINE BESYLATE
  5. OPSUMIT [Suspect]
     Active Substance: MACITENTAN
     Indication: PULMONARY HYPERTENSION
     Dosage: 10 MG, QD
     Route: 048
     Dates: start: 201906

REACTIONS (5)
  - Raynaud^s phenomenon [Unknown]
  - Oxygen saturation decreased [Unknown]
  - Chills [Unknown]
  - Dyspnoea at rest [Unknown]
  - Poor peripheral circulation [Unknown]
